FAERS Safety Report 7217084-8 (Version None)
Quarter: 2011Q1

REPORT INFORMATION
  Report Type: 
  Country: None (occurrence: None)
  Receive Date: 20110110
  Receipt Date: 20101214
  Transmission Date: 20110831
  Serious: No
  Sender: FDA-Public Use
  Company Number: US-B.I. PHARMACEUTICALS,INC./RIDGEFIELD-2010-BP-14532BP

PATIENT
  Age: 76 Year
  Sex: Female

DRUGS (8)
  1. ASPIRIN [Concomitant]
     Indication: CARDIAC DISORDER
     Route: 048
     Dates: start: 20060101
  2. ASACOL [Concomitant]
     Indication: COLITIS
     Dosage: 2000 MG
     Route: 048
     Dates: start: 19980101
  3. CELEBREX [Concomitant]
     Indication: ARTHRITIS
     Dosage: 100 MG
     Route: 048
     Dates: start: 20000101
  4. SPIRIVA [Suspect]
     Indication: CHRONIC OBSTRUCTIVE PULMONARY DISEASE
     Dosage: 18 MCG
     Route: 055
     Dates: start: 20100901
  5. PREDNISONE [Concomitant]
     Indication: ABDOMINAL DISCOMFORT
     Dosage: 10 MG
     Route: 048
  6. ALPRAZOLAM [Concomitant]
     Indication: PANIC ATTACK
     Dosage: 1/4 QD
     Route: 048
     Dates: start: 19800101
  7. LISINOPRIL [Concomitant]
     Indication: HYPERTENSION
     Dosage: 20/12.5; 40/25
     Route: 048
     Dates: start: 20090101
  8. PRILOSEC [Concomitant]
     Indication: ARTHRITIS
     Dosage: 20 MG
     Route: 048
     Dates: start: 20050101

REACTIONS (6)
  - DYSPHONIA [None]
  - CONDITION AGGRAVATED [None]
  - RASH [None]
  - STOMATITIS [None]
  - SINUS CONGESTION [None]
  - EPISTAXIS [None]
